FAERS Safety Report 8057436-X (Version None)
Quarter: 2012Q1

REPORT INFORMATION
  Report Type: 
  Country: None (occurrence: None)
  Receive Date: 20120119
  Receipt Date: 20120110
  Transmission Date: 20120608
  Serious: Yes (Hospitalization, Other)
  Sender: FDA-Public Use
  Company Number: US-ASTRAZENECA-2010SE35988

PATIENT
  Age: 62 Year
  Sex: Female

DRUGS (13)
  1. NITROGLYCERIN [Concomitant]
  2. DIOVAN [Concomitant]
  3. ASPIRIN [Concomitant]
  4. METFORMIN HCL [Concomitant]
  5. PRAVASTATIN SODIUM [Concomitant]
  6. CITALOPRAM HYDROBROMIDE [Concomitant]
  7. FUROSEMIDE [Concomitant]
  8. ARIMIDEX [Suspect]
     Route: 048
  9. POTASSIUM CL [Concomitant]
  10. PLAVIX [Concomitant]
  11. IBUPROFEN [Concomitant]
  12. GLIPIZIDE [Concomitant]
  13. METOLAZONE [Concomitant]

REACTIONS (9)
  - NEOPLASM MALIGNANT [None]
  - OEDEMA PERIPHERAL [None]
  - ADVERSE EVENT [None]
  - RESPIRATORY DISORDER [None]
  - CARDIAC FAILURE CONGESTIVE [None]
  - HYPERTENSION [None]
  - CHRONIC OBSTRUCTIVE PULMONARY DISEASE [None]
  - SLEEP APNOEA SYNDROME [None]
  - DIABETES MELLITUS [None]
